FAERS Safety Report 10187322 (Version 1)
Quarter: 2014Q2

REPORT INFORMATION
  Report Type: Spontaneous
  Country: US (occurrence: US)
  Receive Date: 20140522
  Receipt Date: 20140522
  Transmission Date: 20141212
  Serious: No
  Sender: FDA-Public Use
  Company Number: US-PFIZER INC-2014136334

PATIENT
  Age: 61 Year
  Sex: Female
  Weight: 117.91 kg

DRUGS (12)
  1. REVATIO [Suspect]
     Dosage: 20 MG, 2X/DAY
     Route: 048
     Dates: start: 2013
  2. AMLODIPINE [Concomitant]
     Dosage: 5 MG, 2X/DAY
  3. FUROSEMIDE [Concomitant]
     Dosage: 40 MG, 2X/DAY
  4. SPIRONOLACTONE [Concomitant]
     Dosage: 25 MG, 2X/DAY
  5. KLOR CON [Concomitant]
     Dosage: 20 MG, 2X/DAY
  6. OMEPRAZOLE [Concomitant]
     Dosage: 40 MG, 2X/DAY
  7. METFORMIN [Concomitant]
     Dosage: 500 MG, 1X/DAY
  8. VITAMIN D3 [Concomitant]
     Dosage: 2000 IU, 1X/DAY
  9. INDOMETHACIN [Concomitant]
     Indication: GOUT
     Dosage: 50 MG, AS NEEDED
  10. KETOROLAC [Concomitant]
     Dosage: 5 MG, UNK
     Route: 047
  11. IBUPROFEN [Concomitant]
     Dosage: UNK, AS NEEDED
  12. ADVAIR [Concomitant]
     Dosage: UNK, 2X/DAY

REACTIONS (3)
  - Abnormal dreams [Unknown]
  - Nausea [Unknown]
  - Hepatic enzyme increased [Unknown]
